FAERS Safety Report 12552076 (Version 2)
Quarter: 2017Q3

REPORT INFORMATION
  Report Type: Spontaneous
  Country: ZA (occurrence: ZA)
  Receive Date: 20160713
  Receipt Date: 20170829
  Transmission Date: 20171127
  Serious: Yes (Death)
  Sender: FDA-Public Use
  Company Number: ZA-SUN PHARMACEUTICAL INDUSTRIES LTD-2016R1-119767

PATIENT
  Age: 22 Month
  Sex: Male

DRUGS (1)
  1. PROPRANOLOL [Suspect]
     Active Substance: PROPRANOLOL HYDROCHLORIDE
     Indication: PRODUCT USED FOR UNKNOWN INDICATION
     Dosage: 4 MG/KG, DAILY
     Route: 065

REACTIONS (6)
  - Escherichia sepsis [Fatal]
  - Pneumonia klebsiella [Fatal]
  - Septic shock [Fatal]
  - Intestinal ischaemia [Fatal]
  - Intestinal obstruction [Fatal]
  - Pneumatosis intestinalis [Fatal]
